FAERS Safety Report 6806078-X (Version None)
Quarter: 2010Q2

REPORT INFORMATION
  Report Type: 
  Country: None (occurrence: None)
  Receive Date: 20100629
  Receipt Date: 20080209
  Transmission Date: 20101027
  Serious: No
  Sender: FDA-Public Use
  Company Number: US-PFIZER INC-2007095388

PATIENT
  Sex: Male

DRUGS (3)
  1. VIAGRA [Suspect]
     Indication: ERECTILE DYSFUNCTION
     Dates: start: 20030701
  2. ANTIHYPERTENSIVES [Concomitant]
     Indication: HYPERTENSION
  3. CHOLESTEROL- AND TRIGLYCERIDE REDUCERS [Concomitant]
     Indication: BLOOD CHOLESTEROL INCREASED

REACTIONS (1)
  - DRUG INEFFECTIVE [None]
